FAERS Safety Report 13523956 (Version 4)
Quarter: 2017Q3

REPORT INFORMATION
  Report Type: Report from Study
  Country: FR (occurrence: FR)
  Receive Date: 20170508
  Receipt Date: 20170904
  Transmission Date: 20171127
  Serious: Yes (Other)
  Sender: FDA-Public Use
  Company Number: PHHO2017FR007590

PATIENT
  Age: 73 Year
  Sex: Male
  Weight: 85 kg

DRUGS (9)
  1. OPTIVE [Concomitant]
     Active Substance: CARBOXYMETHYLCELLULOSE SODIUM\GLYCERIN
     Indication: CONJUNCTIVITIS
     Dosage: BID
     Route: 065
     Dates: start: 20160727
  2. NERISONE [Concomitant]
     Active Substance: DIFLUCORTOLONE VALERATE
     Indication: PSORIASIS
     Dosage: PRN
     Route: 061
     Dates: start: 2006
  3. DAIVONEX [Concomitant]
     Active Substance: CALCIPOTRIENE
     Indication: PSORIASIS
     Dosage: UNK, PRN
     Route: 061
     Dates: start: 2006
  4. GLYCEROL\PARAFFIN [Concomitant]
     Active Substance: GLYCERIN\PARAFFIN
     Indication: PSORIASIS
     Dosage: UNK, PRN
     Route: 061
     Dates: start: 2006
  5. SEPIA [Concomitant]
     Indication: PRODUCT USED FOR UNKNOWN INDICATION
     Dosage: UNK, PRN
     Route: 065
     Dates: start: 2006
  6. AIN457 [Suspect]
     Active Substance: SECUKINUMAB
     Indication: PSORIASIS
     Dosage: 300 MG (2X150 MG), QMO
     Route: 058
     Dates: start: 20160511, end: 20170420
  7. ARTIFICIAL TEARS [Concomitant]
     Active Substance: GLYCERIN\HYPROMELLOSES\POLYETHYLENE GLYCOL 400
     Indication: CONJUNCTIVITIS
     Dosage: UNK, TID
     Route: 065
     Dates: start: 20160727
  8. DAIVOBET [Concomitant]
     Active Substance: BETAMETHASONE DIPROPIONATE\CALCIPOTRIENE
     Indication: PSORIASIS
     Dosage: UNK UNK, PRN
     Route: 061
     Dates: start: 2006
  9. SEBIPROX [Concomitant]
     Indication: PRODUCT USED FOR UNKNOWN INDICATION
     Dosage: UNK, PRN
     Route: 065
     Dates: start: 2006

REACTIONS (1)
  - Bladder transitional cell carcinoma [Recovered/Resolved]

NARRATIVE: CASE EVENT DATE: 20170425
